FAERS Safety Report 5928823-8 (Version None)
Quarter: 2008Q4

REPORT INFORMATION
  Report Type: 
  Country: None (occurrence: None)
  Receive Date: 20081020
  Receipt Date: 20081002
  Transmission Date: 20090506
  Serious: Yes (Other)
  Sender: FDA-Public Use
  Company Number: 8033808

PATIENT
  Age: 25 Month
  Sex: Male
  Weight: 6.63 kg

DRUGS (2)
  1. KEPPRA [Suspect]
     Indication: EPILEPSY
     Dosage: 160 MG 2/D PO
     Route: 048
     Dates: start: 20080429, end: 20080522
  2. VALPROATE SODIUM [Concomitant]

REACTIONS (7)
  - AGITATION [None]
  - CRYING [None]
  - MALAISE [None]
  - RASH [None]
  - RESTLESSNESS [None]
  - THROMBOCYTOPENIA [None]
  - VOMITING [None]
